FAERS Safety Report 12463072 (Version 1)
Quarter: 2016Q2

REPORT INFORMATION
  Report Type: Spontaneous
  Country: US (occurrence: US)
  Receive Date: 20160614
  Receipt Date: 20160614
  Transmission Date: 20160815
  Serious: Yes (Other)
  Sender: FDA-Public Use
  Company Number: US-AMGEN-USASP2016072471

PATIENT
  Sex: Male

DRUGS (9)
  1. PROLIA [Suspect]
     Active Substance: DENOSUMAB
     Indication: OSTEOPOROSIS
     Dosage: UNK
     Route: 065
  2. SUTENT [Suspect]
     Active Substance: SUNITINIB MALATE
     Indication: RENAL CELL CARCINOMA STAGE IV
     Dosage: 50 MG, QD
     Route: 065
     Dates: start: 20150626
  3. NIASPAN [Concomitant]
     Active Substance: NIACIN
     Indication: LIPIDS INCREASED
  4. LISINOPRIL. [Concomitant]
     Active Substance: LISINOPRIL
     Indication: HYPERTENSION
  5. GLYBURIDE. [Concomitant]
     Active Substance: GLYBURIDE
     Indication: TYPE 2 DIABETES MELLITUS
  6. ZOCOR [Concomitant]
     Active Substance: SIMVASTATIN
     Indication: LIPIDS INCREASED
  7. MULTIVITAMIN [Concomitant]
     Active Substance: VITAMINS
  8. AMLODIPINE BESILATE [Suspect]
     Active Substance: AMLODIPINE BESYLATE
     Indication: BLOOD PRESSURE INCREASED
     Route: 065
  9. VITAMIN C [Concomitant]
     Active Substance: ASCORBIC ACID
     Dosage: UNK
     Dates: start: 1990

REACTIONS (17)
  - Weight decreased [Unknown]
  - Hyperkalaemia [Unknown]
  - Hypertension [Not Recovered/Not Resolved]
  - Yellow skin [Unknown]
  - Hypoglycaemia [Unknown]
  - Therapeutic response unexpected [Unknown]
  - Memory impairment [Unknown]
  - Dysgeusia [Unknown]
  - Platelet count decreased [Unknown]
  - Back pain [Unknown]
  - Pain in extremity [Unknown]
  - Skin lesion [Not Recovered/Not Resolved]
  - Anaemia megaloblastic [Unknown]
  - Feeling abnormal [Unknown]
  - Hair colour changes [Unknown]
  - Skin irritation [Unknown]
  - Oedema peripheral [Unknown]
